FAERS Safety Report 5079855-6 (Version None)
Quarter: 2006Q3

REPORT INFORMATION
  Report Type: 
  Country: None (occurrence: None)
  Receive Date: 20060809
  Receipt Date: 20060727
  Transmission Date: 20061208
  Serious: Yes (Other)
  Sender: FDA-Public Use
  Company Number: 2006092748

PATIENT
  Age: 34 Year
  Sex: Male

DRUGS (3)
  1. NORVASC [Suspect]
     Indication: HYPERTENSION
     Dates: start: 20060101
  2. PERCOCET [Concomitant]
  3. CATAPRES-TTS-1 [Concomitant]

REACTIONS (1)
  - COMPLEX REGIONAL PAIN SYNDROME [None]
